FAERS Safety Report 6819609-0 (Version None)
Quarter: 2010Q3

REPORT INFORMATION
  Report Type: 
  Country: None (occurrence: None)
  Receive Date: 20100701
  Receipt Date: 20100127
  Transmission Date: 20110219
  Serious: No
  Sender: FDA-Public Use
  Company Number: US-TEVA-222478USA

PATIENT
  Sex: Female
  Weight: 40.86 kg

DRUGS (6)
  1. AZILECT [Suspect]
     Indication: PARKINSON'S DISEASE
     Route: 048
     Dates: start: 20090101
  2. SINEMET [Concomitant]
  3. AMANTADINE HCL [Concomitant]
  4. CITALOPRAM HYDROBROMIDE [Concomitant]
  5. SIMVASTATIN [Concomitant]
  6. MIRTAZAPINE [Concomitant]

REACTIONS (1)
  - ALOPECIA [None]
